FAERS Safety Report 10151200 (Version 1)
Quarter: 2014Q2

REPORT INFORMATION
  Report Type: Spontaneous
  Country: US (occurrence: US)
  Receive Date: 20140502
  Receipt Date: 20140502
  Transmission Date: 20141212
  Serious: No
  Sender: FDA-Public Use
  Company Number: US-ASTRAZENECA-2014SE09710

PATIENT
  Sex: Female

DRUGS (6)
  1. PRILOSEC OTC [Suspect]
     Indication: IRRITABLE BOWEL SYNDROME
     Route: 048
  2. CARDIOVASCULAR SYSTEM DRUGS [Concomitant]
     Dosage: UNKNOWN
  3. CHOLESTEROL- AND TRIGLYCERIDE REDUCERS [Concomitant]
     Dosage: UNKNOWN
  4. FIBERCOM [Concomitant]
     Dosage: UNKNOWN
  5. PROBITICS [Concomitant]
     Dosage: UNKNOWN
  6. ALL OTHER THERAPEUTIC PRODUCTS [Concomitant]

REACTIONS (2)
  - Oral disorder [Recovering/Resolving]
  - Dysgeusia [Recovering/Resolving]
